FAERS Safety Report 20092785 (Version 1)
Quarter: 2021Q4

REPORT INFORMATION
  Report Type: Spontaneous
  Country: US (occurrence: US)
  Receive Date: 20211120
  Receipt Date: 20211120
  Transmission Date: 20220303
  Serious: No
  Sender: FDA-Public Use
  Company Number: US-drreddys-LIT/USA/21/0143777

PATIENT
  Age: 18 Year
  Sex: Female

DRUGS (3)
  1. ATOMOXETINE [Suspect]
     Active Substance: ATOMOXETINE
     Indication: Anorexia nervosa
  2. ATOMOXETINE [Suspect]
     Active Substance: ATOMOXETINE
     Dosage: DOSE WAS INCREASED TO 1.2 MG/KG
  3. SERTRALINE [Concomitant]
     Active Substance: SERTRALINE HYDROCHLORIDE
     Indication: Product used for unknown indication
     Dosage: INCREASE IN DOSE

REACTIONS (2)
  - Nausea [Unknown]
  - Product use in unapproved indication [Unknown]
